FAERS Safety Report 6181303-X (Version None)
Quarter: 2009Q2

REPORT INFORMATION
  Report Type: 
  Country: None (occurrence: None)
  Receive Date: 20090506
  Receipt Date: 20090428
  Transmission Date: 20091009
  Serious: Yes (Hospitalization)
  Sender: FDA-Public Use
  Company Number: JP-BRISTOL-MYERS SQUIBB COMPANY-14596019

PATIENT
  Age: 68 Year
  Sex: Male

DRUGS (1)
  1. SPRYCEL [Suspect]
     Indication: CHRONIC MYELOID LEUKAEMIA
     Route: 048
     Dates: start: 20090212, end: 20090416

REACTIONS (4)
  - CONSTIPATION [None]
  - ILEUS PARALYTIC [None]
  - NEUROPATHY PERIPHERAL [None]
  - PLEURAL EFFUSION [None]
